FAERS Safety Report 11611139 (Version 1)
Quarter: 2015Q4

REPORT INFORMATION
  Report Type: Spontaneous
  Country: US (occurrence: None)
  Receive Date: 20151007
  Receipt Date: 20151007
  Transmission Date: 20160304
  Serious: No
  Sender: FDA-Public Use
  Company Number: None

PATIENT
  Age: 56 Year
  Sex: Male

DRUGS (1)
  1. CAPECITABINE. [Suspect]
     Active Substance: CAPECITABINE
     Indication: RECTAL CANCER
     Dosage: 4 TABS QAM + 5 TABS QPM X 14
     Route: 048
     Dates: start: 20150915

REACTIONS (3)
  - Stomatitis [None]
  - Palmar-plantar erythrodysaesthesia syndrome [None]
  - Diarrhoea [None]

NARRATIVE: CASE EVENT DATE: 20150923
